FAERS Safety Report 15425237 (Version 1)
Quarter: 2018Q3

REPORT INFORMATION
  Report Type: Spontaneous
  Country: US (occurrence: US)
  Receive Date: 20180925
  Receipt Date: 20180925
  Transmission Date: 20181010
  Serious: Yes (Death, Hospitalization, Other)
  Sender: FDA-Public Use
  Company Number: US-ZYDUS-026944

PATIENT
  Age: 52 Year
  Sex: Male

DRUGS (2)
  1. DEXTROAMPHETAMINE. [Suspect]
     Active Substance: DEXTROAMPHETAMINE
     Indication: PRODUCT USED FOR UNKNOWN INDICATION
     Route: 065
  2. METAMFETAMINE [Suspect]
     Active Substance: METHAMPHETAMINE
     Indication: PRODUCT USED FOR UNKNOWN INDICATION
     Route: 065

REACTIONS (13)
  - Myocardial ischaemia [Unknown]
  - Pneumonia aspiration [Unknown]
  - Death [Fatal]
  - Respiratory depression [Unknown]
  - Depressed level of consciousness [Unknown]
  - Metabolic acidosis [Unknown]
  - Hepatotoxicity [Unknown]
  - Acute kidney injury [Unknown]
  - Hypotension [Unknown]
  - Toxicity to various agents [Unknown]
  - Agitation [Unknown]
  - Leukocytosis [Unknown]
  - Rhabdomyolysis [Unknown]
